FAERS Safety Report 5521142-3 (Version None)
Quarter: 2007Q4

REPORT INFORMATION
  Report Type: 
  Country: None (occurrence: None)
  Receive Date: 20071119
  Receipt Date: 20071108
  Transmission Date: 20080405
  Serious: Yes (Death, Other)
  Sender: FDA-Public Use
  Company Number: GB-WYE-G00584107

PATIENT
  Age: 2 Week
  Sex: Female
  Weight: 2.78 kg

DRUGS (3)
  1. VENLAFAXIINE HCL [Suspect]
     Indication: SCHIZOPHRENIA
     Route: 063
     Dates: start: 20070911, end: 20070923
  2. ZOPICLONE [Suspect]
     Indication: SLEEP DISORDER
     Route: 063
     Dates: start: 20070911, end: 20070923
  3. QUETIAPINE FUMARATE [Suspect]
     Indication: SCHIZOPHRENIA
     Route: 063
     Dates: start: 20070911, end: 20070923

REACTIONS (2)
  - DRUG EXPOSURE VIA BREAST MILK [None]
  - SUDDEN INFANT DEATH SYNDROME [None]
